FAERS Safety Report 6371522-1 (Version None)
Quarter: 2009Q3

REPORT INFORMATION
  Report Type: 
  Country: None (occurrence: None)
  Receive Date: 20090923
  Receipt Date: 20071120
  Transmission Date: 20100115
  Serious: Yes (Other)
  Sender: FDA-Public Use
  Company Number: US-ASTRAZENECA-2007UW19280

PATIENT
  Age: 13900 Day
  Sex: Female

DRUGS (16)
  1. SEROQUEL [Suspect]
     Indication: DEPRESSION
     Route: 048
     Dates: start: 20031201, end: 20060620
  2. SEROQUEL [Suspect]
     Dosage: 100-300 MG
     Route: 048
     Dates: start: 20051221
  3. TYLENOL (CAPLET) [Concomitant]
     Route: 048
     Dates: start: 20040901
  4. LORTAB [Concomitant]
     Indication: PAIN
     Dosage: 5/500 MG, 1 TABLET TWICE DAILY AS NEEDED
     Dates: start: 20040930
  5. HCD/APAP [Concomitant]
     Indication: PAIN
     Dosage: 5-500 MG, 1 TABLET TWICE DAILY AS NEEDED
     Dates: start: 20041027
  6. GLIPIZIDE [Concomitant]
     Indication: BLOOD GLUCOSE DECREASED
     Dates: start: 20041116
  7. DIOVAN [Concomitant]
     Indication: BLOOD PRESSURE
     Dates: start: 20051221
  8. DIOVAN [Concomitant]
     Indication: DIURETIC THERAPY
     Dates: start: 20051221
  9. PRILOSEC [Concomitant]
     Indication: ABDOMINAL DISCOMFORT
     Dates: start: 20051221
  10. GABAPENTIN [Concomitant]
     Dates: start: 20060123
  11. PROMETHAZINE [Concomitant]
     Dosage: 25 MG, 1 TABLET EACH DAY AS NEEDED
     Route: 048
     Dates: start: 20060323
  12. LOTREL [Concomitant]
     Indication: BLOOD PRESSURE
     Dosage: 5-10 MG, 1 CAPSULE EACH DAY
     Route: 048
     Dates: start: 20060323
  13. ALPRAZOLAM [Concomitant]
     Dosage: 1 MG, 1 TABLET EACH DAY AS NEEDED
     Route: 048
     Dates: start: 20060427
  14. TRAMADOL HCL [Concomitant]
     Indication: PAIN
     Route: 048
     Dates: start: 20060427
  15. COTRIM [Concomitant]
     Dosage: 1 TABLET TWICE A DAY
     Dates: start: 20051221
  16. APAP TAB [Concomitant]
     Indication: PAIN
     Dosage: 300-30, 1 TABLET TWICE DAILY AS NEEDED, 1 TABLET 3 TIMES A DAY
     Route: 048
     Dates: start: 20051221

REACTIONS (1)
  - DIABETIC KETOACIDOSIS [None]
